FAERS Safety Report 5422554-9 (Version None)
Quarter: 2007Q3

REPORT INFORMATION
  Report Type: 
  Country: None (occurrence: None)
  Receive Date: 20070822
  Receipt Date: 20070817
  Transmission Date: 20080115
  Serious: Yes (Other)
  Sender: FDA-Public Use
  Company Number: US-ELI_LILLY_AND_COMPANY-US200707004430

PATIENT
  Sex: Male

DRUGS (12)
  1. ALIMTA [Suspect]
     Indication: BLADDER CANCER
     Dosage: 859 MG, UNK
     Route: 042
  2. LANOXIN [Concomitant]
  3. DIOVAN [Concomitant]
  4. ASPIRIN [Concomitant]
  5. TOFRANIL [Concomitant]
  6. POTASSIUM CHLORIDE [Concomitant]
  7. PROTONIX [Concomitant]
  8. DETROL [Concomitant]
  9. LURGYL [Concomitant]
  10. FOLIC ACID [Concomitant]
     Dosage: 1 MG, DAILY (1/D)
     Dates: start: 20070215
  11. VITAMIN B-12 [Concomitant]
     Dosage: 1000 UG, OTHER
     Route: 030
     Dates: start: 20070215
  12. LYRICA [Concomitant]
     Dates: start: 20070309

REACTIONS (2)
  - PERICARDIAL EFFUSION [None]
  - PLEURAL EFFUSION [None]
